FAERS Safety Report 20920715 (Version 1)
Quarter: 2022Q2

REPORT INFORMATION
  Report Type: Spontaneous
  Country: US (occurrence: US)
  Receive Date: 20220606
  Receipt Date: 20220606
  Transmission Date: 20220721
  Serious: Yes (Hospitalization)
  Sender: FDA-Public Use
  Company Number: US-PFIZER INC-202200792410

PATIENT
  Age: 102 Year
  Sex: Male

DRUGS (11)
  1. PAXLOVID [Suspect]
     Active Substance: NIRMATRELVIR\RITONAVIR
     Indication: COVID-19 treatment
     Dosage: UNK
     Dates: start: 20220528, end: 20220531
  2. DIGOXIN [Concomitant]
     Active Substance: DIGOXIN
     Dosage: UNK
     Dates: start: 20210101, end: 20220602
  3. DIGOXIN [Concomitant]
     Active Substance: DIGOXIN
     Dates: start: 20210101, end: 20220602
  4. DIGOXIN [Concomitant]
     Active Substance: DIGOXIN
     Dates: start: 20210101, end: 20220602
  5. DIGOXIN [Concomitant]
     Active Substance: DIGOXIN
     Dates: start: 20210101, end: 20220602
  6. DIGOXIN [Concomitant]
     Active Substance: DIGOXIN
     Dates: start: 20210101, end: 20220602
  7. DIGOXIN [Concomitant]
     Active Substance: DIGOXIN
     Dates: start: 20210101, end: 20220602
  8. LEXAPRO [Concomitant]
     Active Substance: ESCITALOPRAM OXALATE
     Dosage: UNK
     Dates: start: 20210101, end: 20220602
  9. METOPROLOL [Concomitant]
     Active Substance: METOPROLOL
     Dosage: UNK
     Dates: start: 20210101, end: 20220602
  10. PRAVASTATIN [Concomitant]
     Active Substance: PRAVASTATIN
     Dosage: UNK
     Dates: start: 20210101, end: 20220602
  11. ALPRAZOLAM [Concomitant]
     Active Substance: ALPRAZOLAM
     Dosage: UNK
     Dates: start: 20210101, end: 20220602

REACTIONS (2)
  - Hallucination [Not Recovered/Not Resolved]
  - Confusional state [Not Recovered/Not Resolved]

NARRATIVE: CASE EVENT DATE: 20220528
